FAERS Safety Report 22335589 (Version 1)
Quarter: 2023Q2

REPORT INFORMATION
  Report Type: Spontaneous
  Country: DE (occurrence: DE)
  Receive Date: 20230518
  Receipt Date: 20230518
  Transmission Date: 20230722
  Serious: Yes (Life-Threatening, Hospitalization, Other)
  Sender: FDA-Public Use
  Company Number: None

PATIENT
  Age: 83 Year
  Sex: Male
  Weight: 70 kg

DRUGS (32)
  1. TRIMETHOPRIM [Suspect]
     Active Substance: TRIMETHOPRIM
     Indication: Infection prophylaxis
     Dosage: 1 DF, QD
     Route: 048
     Dates: start: 19980226, end: 19980226
  2. CIPROFLOXACIN HYDROCHLORIDE [Suspect]
     Active Substance: CIPROFLOXACIN HYDROCHLORIDE
     Indication: Infection prophylaxis
     Dosage: 400 MG, 1X
     Route: 042
     Dates: start: 19980226, end: 19980226
  3. NIFEDIPINE [Suspect]
     Active Substance: NIFEDIPINE
     Indication: Hypertension
     Dosage: 10 MG, QD
     Route: 048
     Dates: start: 19980226, end: 19980226
  4. ASPIRIN [Suspect]
     Active Substance: ASPIRIN
     Indication: Thrombosis prophylaxis
     Dosage: 100 MG, QD
     Route: 048
     Dates: end: 19980223
  5. NOVALGIN (METAMIZOLE SODIUM) [Suspect]
     Active Substance: METAMIZOLE SODIUM
     Indication: Pain
     Dosage: 40 DROP (1/12 MILLILITRE), QD
     Route: 048
     Dates: start: 19980226, end: 19980226
  6. LORMETAZEPAM [Suspect]
     Active Substance: LORMETAZEPAM
     Indication: Sleep disorder
     Dosage: 1 DF, QD
     Route: 048
     Dates: end: 19980223
  7. FENTANYL [Suspect]
     Active Substance: FENTANYL
     Indication: Anaesthesia
     Dosage: 1 DF, QD
     Route: 042
     Dates: start: 19980226, end: 19980226
  8. TRAMADOL HYDROCHLORIDE [Suspect]
     Active Substance: TRAMADOL HYDROCHLORIDE
     Indication: Pain
     Dosage: 100 MG, QD
     Route: 048
     Dates: start: 19980209, end: 19980223
  9. HYDROCHLOROTHIAZIDE [Suspect]
     Active Substance: HYDROCHLOROTHIAZIDE
     Indication: Hypertension
     Dosage: 160 MG, QD
     Route: 048
  10. GLYBURIDE [Suspect]
     Active Substance: GLYBURIDE
     Indication: Diabetes mellitus
     Dosage: 2 DF, QD
     Route: 048
  11. SULFAMETHOXAZOLE [Suspect]
     Active Substance: SULFAMETHOXAZOLE
     Indication: Infection prophylaxis
     Dosage: 1 DF, QD
     Route: 048
     Dates: start: 19980226, end: 19980226
  12. HYDROCHLOROTHIAZIDE\VALSARTAN [Suspect]
     Active Substance: HYDROCHLOROTHIAZIDE\VALSARTAN
     Indication: Hypertension
     Dosage: 160 MG, QD
     Route: 048
  13. DALTEPARIN SODIUM [Suspect]
     Active Substance: DALTEPARIN SODIUM
     Indication: Thrombosis prophylaxis
     Dosage: 1 DF, QD
     Route: 058
     Dates: start: 19980225
  14. FLAVOXATE HYDROCHLORIDE [Concomitant]
     Active Substance: FLAVOXATE HYDROCHLORIDE
     Indication: Prostatic operation
     Dosage: UNK
     Route: 048
     Dates: end: 19980223
  15. POTASSIUM CHLORIDE [Concomitant]
     Active Substance: POTASSIUM CHLORIDE
     Indication: Electrolyte imbalance
     Dosage: 1 L, QD
     Route: 042
     Dates: start: 19980226, end: 19980226
  16. ZINC ACETATE [Concomitant]
     Active Substance: ZINC ACETATE
     Indication: Electrolyte imbalance
     Dosage: 1 L, QD
     Route: 042
     Dates: start: 19980226, end: 19980226
  17. GINKGO [Concomitant]
     Active Substance: GINKGO
     Indication: Cardiovascular disorder
     Dosage: 1 DF, QD
     Route: 048
     Dates: end: 19980223
  18. UNSPECIFIED INGREDIENT [Concomitant]
     Active Substance: UNSPECIFIED INGREDIENT
     Indication: Electrolyte imbalance
     Dosage: 1 L, QD
     Route: 042
     Dates: start: 19980226, end: 19980226
  19. AGIOLAX (OHNE SENNA) [Concomitant]
     Indication: Constipation
     Dosage: UNK
     Route: 048
     Dates: end: 19980223
  20. DEXAMETHASONE [Concomitant]
     Active Substance: DEXAMETHASONE
     Indication: Cataract operation
     Dosage: 5 DROP (1/12 MILLILITRE), QD
     Route: 047
  21. SODIUM ACETATE [Concomitant]
     Active Substance: SODIUM ACETATE
     Indication: Electrolyte imbalance
     Dosage: 1 L, QD
     Route: 042
     Dates: start: 19980226, end: 19980226
  22. PSYCHOTONIN SED [Concomitant]
     Indication: Agitation
     Dosage: 1 DF, QD
     Route: 048
     Dates: end: 19980223
  23. XYLITOL [Concomitant]
     Active Substance: XYLITOL
     Indication: Electrolyte imbalance
     Dosage: 1 L, QD
     Route: 042
     Dates: start: 19980226, end: 19980226
  24. GINKGO [Concomitant]
     Active Substance: GINKGO
     Indication: Cardiovascular disorder
     Dosage: 60 DROP (1/12 MILLILITRE), QD
     Route: 048
     Dates: start: 19980224
  25. NOVODIGAL (.BETA.-ACETYLDIGOXIN) [Concomitant]
     Active Substance: .BETA.-ACETYLDIGOXIN
     Indication: Hypertension
     Dosage: 0.2 MG, QD
     Route: 048
  26. MAGNESIUM CHLORIDE [Concomitant]
     Active Substance: MAGNESIUM CHLORIDE
     Indication: Electrolyte imbalance
     Dosage: 1 L, QD
     Route: 042
     Dates: start: 19980226, end: 19980226
  27. VITAMIN C [Concomitant]
     Active Substance: ASCORBIC ACID
     Indication: Vitamin supplementation
     Dosage: 1 DF, QD
     Route: 048
     Dates: end: 19980223
  28. NORVASC [Concomitant]
     Active Substance: AMLODIPINE BESYLATE
     Indication: Hypertension
     Dosage: 10 MG, QD
     Route: 048
  29. OMEPRAZOLE [Concomitant]
     Active Substance: OMEPRAZOLE
     Indication: Prophylaxis
     Dosage: UNK
     Route: 048
     Dates: end: 19980223
  30. MATRICARIA RECUTITA [Concomitant]
     Active Substance: MATRICARIA RECUTITA
     Indication: Constipation
     Dosage: UNK
     Route: 048
     Dates: end: 19980223
  31. SODIUM CHLORIDE [Concomitant]
     Active Substance: SODIUM CHLORIDE
     Indication: Electrolyte imbalance
     Dosage: 1 L, QD
     Route: 042
     Dates: start: 19980226, end: 19980226
  32. DEXTROSE [Concomitant]
     Active Substance: DEXTROSE\DEXTROSE MONOHYDRATE
     Indication: Electrolyte imbalance
     Dosage: 1 L, QD
     Route: 042
     Dates: start: 19980226, end: 19980226

REACTIONS (10)
  - Skin lesion [Recovering/Resolving]
  - Cheilitis [Recovered/Resolved]
  - Toxic epidermal necrolysis [Recovering/Resolving]
  - Erythema [Recovered/Resolved]
  - Lip erosion [Recovering/Resolving]
  - Pruritus [Recovered/Resolved]
  - Ocular hyperaemia [Recovering/Resolving]
  - Pyrexia [Recovered/Resolved]
  - Urinary hesitation [Recovered/Resolved]
  - Mucosal inflammation [Recovered/Resolved]

NARRATIVE: CASE EVENT DATE: 19980227
